FAERS Safety Report 7072062-7 (Version None)
Quarter: 2010Q4

REPORT INFORMATION
  Report Type: 
  Country: None (occurrence: None)
  Receive Date: 20101029
  Receipt Date: 20100118
  Transmission Date: 20110411
  Serious: No
  Sender: FDA-Public Use
  Company Number: A0832025A

PATIENT
  Age: 77 Year
  Sex: Male

DRUGS (20)
  1. ADVAIR DISKUS 100/50 [Suspect]
     Indication: ASTHMA
     Dosage: 1PUFF TWICE PER DAY
     Route: 055
  2. SPIRIVA [Concomitant]
  3. ALBUTEROL [Concomitant]
  4. GEMFIBROZIL [Concomitant]
  5. PRILOSEC [Concomitant]
  6. PRIMIDONE [Concomitant]
  7. SINGULAIR [Concomitant]
  8. COSOPT [Concomitant]
  9. LISINOPRIL [Concomitant]
  10. HYDROCHLOROTHIAZIDE [Concomitant]
  11. METOPROLOL [Concomitant]
  12. CITRACAL [Concomitant]
  13. VITAMIN-MINERAL COMPOUND TAB [Concomitant]
  14. CO Q10 [Concomitant]
  15. METAMUCIL-2 [Concomitant]
  16. ASPIRIN [Concomitant]
  17. REFRESH TEARS [Concomitant]
  18. TYLENOL W/ CODEINE [Concomitant]
  19. ZYRTEC [Concomitant]
  20. NASONEX [Concomitant]

REACTIONS (3)
  - DYSPNOEA [None]
  - DYSPNOEA EXERTIONAL [None]
  - PRODUCT QUALITY ISSUE [None]
